FAERS Safety Report 5353956-7 (Version None)
Quarter: 2007Q2

REPORT INFORMATION
  Report Type: 
  Country: None (occurrence: None)
  Receive Date: 20070612
  Receipt Date: 20070531
  Transmission Date: 20071010
  Serious: No
  Sender: FDA-Public Use
  Company Number: US-ASTRAZENECA-2006UW07891

PATIENT
  Sex: Female
  Weight: 84.1 kg

DRUGS (7)
  1. SEROQUEL [Suspect]
     Indication: SCHIZOPHRENIA
     Route: 048
     Dates: start: 20010901, end: 20070301
  2. SEROQUEL [Suspect]
     Indication: BIPOLAR DISORDER
     Route: 048
     Dates: start: 20010901, end: 20070301
  3. SEROQUEL [Suspect]
     Indication: DEPRESSION
     Route: 048
     Dates: start: 20010901, end: 20070301
  4. ABILIFY (ARIPIPARAZOLE) [Concomitant]
  5. DOXEPIN HCL [Concomitant]
  6. EFFEXOR [Concomitant]
  7. ZOCOR [Concomitant]

REACTIONS (1)
  - DIABETES MELLITUS NON-INSULIN-DEPENDENT [None]
